FAERS Safety Report 13837669 (Version 1)
Quarter: 2017Q3

REPORT INFORMATION
  Report Type: Spontaneous
  Country: None (occurrence: CO)
  Receive Date: 20170806
  Receipt Date: 20170806
  Transmission Date: 20171127
  Serious: Yes (Other)
  Sender: FDA-Public Use
  Company Number: CO-POPULATION COUNCIL, INC.-2024237

PATIENT
  Age: 20 Year
  Sex: Female
  Weight: 45 kg

DRUGS (1)
  1. JADELLE [Suspect]
     Active Substance: LEVONORGESTREL
     Indication: CONTRACEPTION
     Route: 059
     Dates: start: 20160916, end: 20170506

REACTIONS (2)
  - Menorrhagia [None]
  - Weight decreased [None]

NARRATIVE: CASE EVENT DATE: 20161008
